FAERS Safety Report 10548119 (Version 1)
Quarter: 2014Q4

REPORT INFORMATION
  Report Type: Spontaneous
  Country: GB (occurrence: None)
  Receive Date: 20141024
  Receipt Date: 20141024
  Transmission Date: 20150529
  Serious: Yes (Hospitalization)
  Sender: FDA-Public Use
  Company Number: FK201404412

PATIENT
  Age: 69 Year
  Sex: Male
  Weight: 60 kg

DRUGS (6)
  1. DOXYCYCLINE. [Concomitant]
     Active Substance: DOXYCYCLINE
  2. LANSOPRAZOLE. [Concomitant]
     Active Substance: LANSOPRAZOLE
  3. AVASTIN [Concomitant]
     Active Substance: BEVACIZUMAB
  4. XELODA [Suspect]
     Active Substance: CAPECITABINE
     Indication: GASTRIC ULCER
     Route: 048
     Dates: start: 20121009
  5. CISPLATIN. [Suspect]
     Active Substance: CISPLATIN
     Indication: GASTRIC CANCER
     Route: 042
     Dates: start: 20120910
  6. EPIRUBICIN [Suspect]
     Active Substance: EPIRUBICIN
     Indication: GASTRIC CANCER
     Route: 042
     Dates: start: 20120910

REACTIONS (4)
  - Nausea [None]
  - Lower respiratory tract infection [None]
  - Neutrophil count decreased [None]
  - Haematemesis [None]

NARRATIVE: CASE EVENT DATE: 20121018
